FAERS Safety Report 7307512-1 (Version None)
Quarter: 2011Q1

REPORT INFORMATION
  Report Type: 
  Country: None (occurrence: None)
  Receive Date: 20110223
  Receipt Date: 20110217
  Transmission Date: 20110831
  Serious: Yes (Hospitalization)
  Sender: FDA-Public Use
  Company Number: US-BRISTOL-MYERS SQUIBB COMPANY-15557622

PATIENT
  Age: 58 Year
  Sex: Male

DRUGS (4)
  1. SYNTHROID [Concomitant]
  2. LEXAPRO [Concomitant]
  3. AVALIDE [Suspect]
     Dosage: ALSO LOT:9L2005A,HAS BEEN TAKING AVALIDE FOR 7YEARS
  4. ACIPHEX [Concomitant]

REACTIONS (1)
  - HEART RATE IRREGULAR [None]
